FAERS Safety Report 5298531-8 (Version None)
Quarter: 2007Q2

REPORT INFORMATION
  Report Type: 
  Country: None (occurrence: None)
  Receive Date: 20070409
  Receipt Date: 20070330
  Transmission Date: 20071010
  Serious: Yes (Hospitalization)
  Sender: FDA-Public Use
  Company Number: 232512K07USA

PATIENT
  Age: 47 Year
  Sex: Female

DRUGS (4)
  1. REBIF [Suspect]
     Indication: MULTIPLE SCLEROSIS
     Dosage: 44 MCG, 3 IN 1 WEEKS, SUBCUTANEOUS
     Route: 058
     Dates: start: 20030623
  2. AMITRIPTYLINE HCL [Suspect]
     Dates: end: 20070101
  3. CELEBREX [Concomitant]
  4. KLOR-CON [Concomitant]

REACTIONS (4)
  - DIABETES MELLITUS [None]
  - INFECTION [None]
  - OVERDOSE [None]
  - PAIN [None]
